FAERS Safety Report 4636243-1 (Version None)
Quarter: 2005Q2

REPORT INFORMATION
  Report Type: 
  Country: None (occurrence: None)
  Receive Date: 20050413
  Receipt Date: 20050413
  Transmission Date: 20051028
  Serious: Yes (Hospitalization)
  Sender: FDA-Public Use
  Company Number: None

PATIENT
  Sex: Male
  Weight: 71.2147 kg

DRUGS (2)
  1. CEPHALEXIN [Suspect]
     Dosage: 250MG   TID   ORAL
     Route: 048
     Dates: start: 20041007, end: 20041112
  2. UNASYN [Suspect]
     Dates: start: 20041104, end: 20041108

REACTIONS (2)
  - DERMATITIS [None]
  - RASH PRURITIC [None]
